FAERS Safety Report 4798967-5 (Version None)
Quarter: 2005Q4

REPORT INFORMATION
  Report Type: 
  Country: None (occurrence: None)
  Receive Date: 20051011
  Receipt Date: 20050926
  Transmission Date: 20060501
  Serious: Yes (Hospitalization)
  Sender: FDA-Public Use
  Company Number: 2005-07-0114

PATIENT
  Age: 78 Year
  Sex: Male
  Weight: 64 kg

DRUGS (12)
  1. CLARITIN REDITABS [Suspect]
     Indication: PRURITUS
     Dosage: 10 MG ORAL
     Route: 048
     Dates: start: 20050215, end: 20050513
  2. CEFOPERAZONE /SULBACTAM [Suspect]
     Indication: VIRAL INFECTION
     Dates: start: 20050513, end: 20050515
  3. GABEXATE MESILATE [Suspect]
     Indication: VIRAL INFECTION
     Dates: start: 20050513, end: 20050515
  4. ANGIOTENSIN CONVERTING ENZYME INHIBITOR (NOS) [Concomitant]
  5. ANTIHYPERTENSIVE AGENT (NOS) [Concomitant]
  6. ASPIRIN [Concomitant]
  7. ZYLORIC TABLETS [Concomitant]
  8. BISOPROLOL FUMARATE [Concomitant]
  9. BENEXATE HYDROCHLORIDE CAPSULES [Concomitant]
  10. CLINIDIPINE TABLETS [Concomitant]
  11. MUCODYNE [Concomitant]
  12. MEDICON TABLETS [Concomitant]

REACTIONS (7)
  - DRUG HYPERSENSITIVITY [None]
  - EOSINOPHIL COUNT INCREASED [None]
  - PLATELET COUNT DECREASED [None]
  - RASH [None]
  - STRIDOR [None]
  - VIRAL INFECTION [None]
  - WHITE BLOOD CELL COUNT DECREASED [None]
